FAERS Safety Report 8037456-1 (Version None)
Quarter: 2012Q1

REPORT INFORMATION
  Report Type: 
  Country: None (occurrence: None)
  Receive Date: 20120111
  Receipt Date: 20120109
  Transmission Date: 20120608
  Serious: Yes (Other)
  Sender: FDA-Public Use
  Company Number: BR-PFIZER INC-2012006692

PATIENT
  Sex: Female

DRUGS (1)
  1. ALPRAZOLAM [Suspect]
     Indication: DEPRESSION
     Dosage: 2.5 MG, 1X/DAY
     Route: 048
     Dates: start: 19910101

REACTIONS (3)
  - BREAST CANCER [None]
  - PANIC DISORDER [None]
  - MALAISE [None]
